FAERS Safety Report 10451686 (Version 1)
Quarter: 2014Q3

REPORT INFORMATION
  Report Type: Spontaneous
  Country: JP (occurrence: JP)
  Receive Date: 20140915
  Receipt Date: 20140915
  Transmission Date: 20150326
  Serious: Yes (Hospitalization)
  Sender: FDA-Public Use
  Company Number: PHHY2014JP112254

PATIENT
  Age: 36 Year
  Sex: Female
  Weight: 24.6 kg

DRUGS (2)
  1. OLANZAPINE. [Suspect]
     Active Substance: OLANZAPINE
     Dosage: 2.5 MG, UNK
  2. PAROXETINE [Suspect]
     Active Substance: PAROXETINE\PAROXETINE HYDROCHLORIDE
     Dosage: 20 MG, UNK

REACTIONS (9)
  - Fatigue [Recovered/Resolved]
  - Altered state of consciousness [Recovered/Resolved]
  - Weight decreased [Recovered/Resolved]
  - Nausea [Recovered/Resolved]
  - Blood glucose decreased [Recovered/Resolved]
  - Cachexia [Recovered/Resolved]
  - Anorexia nervosa [Recovered/Resolved]
  - Dysthymic disorder [Recovered/Resolved]
  - Hypoglycaemia [Recovered/Resolved]
